FAERS Safety Report 15123338 (Version 1)
Quarter: 2018Q3

REPORT INFORMATION
  Report Type: Spontaneous
  Country: US (occurrence: US)
  Receive Date: 20180709
  Receipt Date: 20180709
  Transmission Date: 20181010
  Serious: Yes (Other)
  Sender: FDA-Public Use
  Company Number: US-CELGENEUS-USA-20180700164

PATIENT
  Sex: Female
  Weight: 74.91 kg

DRUGS (1)
  1. THALOMID [Suspect]
     Active Substance: THALIDOMIDE
     Indication: CUTANEOUS LUPUS ERYTHEMATOSUS
     Dosage: 100 MILLIGRAM
     Route: 048
     Dates: start: 20180530

REACTIONS (1)
  - Systemic lupus erythematosus rash [Not Recovered/Not Resolved]

NARRATIVE: CASE EVENT DATE: 2018
